FAERS Safety Report 14847839 (Version 1)
Quarter: 2018Q2

REPORT INFORMATION
  Report Type: Spontaneous
  Country: GB (occurrence: GB)
  Receive Date: 20180504
  Receipt Date: 20180504
  Transmission Date: 20180711
  Serious: Yes (Other)
  Sender: FDA-Public Use
  Company Number: PHHY2018GB001360

PATIENT
  Age: 7 Year
  Sex: Male

DRUGS (2)
  1. EQUASYM [Suspect]
     Active Substance: METHYLPHENIDATE HYDROCHLORIDE
     Indication: ATTENTION DEFICIT/HYPERACTIVITY DISORDER
     Dosage: 30 MG, UNK
     Route: 048
     Dates: start: 20171214, end: 20171225
  2. METHYLPHENIDATE HYDROCHLORIDE. [Suspect]
     Active Substance: METHYLPHENIDATE HYDROCHLORIDE
     Indication: ATTENTION DEFICIT/HYPERACTIVITY DISORDER
     Dosage: 10 MG, UNK
     Route: 048
     Dates: start: 20171214, end: 20171214

REACTIONS (4)
  - Swollen tongue [Recovered/Resolved]
  - Abdominal pain upper [Recovered/Resolved]
  - Urticaria [Recovered/Resolved]
  - Vision blurred [Recovered/Resolved]
